FAERS Safety Report 6123870-8 (Version None)
Quarter: 2009Q1

REPORT INFORMATION
  Report Type: 
  Country: None (occurrence: None)
  Receive Date: 20090319
  Receipt Date: 20090310
  Transmission Date: 20090719
  Serious: Yes (Hospitalization, Other)
  Sender: FDA-Public Use
  Company Number: US-BIOGENIDEC-2008BI020337

PATIENT
  Age: 44 Year
  Sex: Male

DRUGS (1)
  1. TYSABRI [Suspect]
     Indication: MULTIPLE SCLEROSIS
     Route: 042
     Dates: start: 20070104

REACTIONS (5)
  - ANAEMIA [None]
  - DIABETES MELLITUS [None]
  - ENCEPHALOPATHY [None]
  - HYPOGLYCAEMIA [None]
  - URINARY TRACT INFECTION [None]
